FAERS Safety Report 8407478-7 (Version None)
Quarter: 2012Q2

REPORT INFORMATION
  Report Type: 
  Country: None (occurrence: None)
  Receive Date: 20120604
  Receipt Date: 20120530
  Transmission Date: 20120825
  Serious: Yes (Hospitalization, Other)
  Sender: FDA-Public Use
  Company Number: US-PFIZER INC-2012088124

PATIENT
  Sex: Female
  Weight: 78.9 kg

DRUGS (6)
  1. SKELAXIN [Suspect]
     Indication: BONE DISORDER
     Dosage: 800 MG, QD
     Dates: start: 20120101
  2. CITRACAL + D [Concomitant]
     Indication: BONE DISORDER
     Dosage: 600 MG, 2 IN 1 DAY
     Route: 048
     Dates: end: 20120101
  3. RECLAST [Concomitant]
     Indication: OSTEOPOROSIS
     Dosage: 1 IN 1 YEAR
     Route: 042
     Dates: start: 20110101
  4. CALCIUM [Concomitant]
     Indication: BONE DISORDER
     Dosage: 600 MG, 2 IN 1 DAY
     Route: 048
     Dates: end: 20120101
  5. CALCIUM CARBONATE [Concomitant]
     Indication: BONE DISORDER
     Dosage: 600 MG, 3 IN 1 DAY
     Route: 048
     Dates: end: 20120101
  6. REMICADE [Suspect]
     Indication: RHEUMATOID ARTHRITIS
     Dosage: 1 IN 8 WEEK
     Route: 042
     Dates: start: 20110922, end: 20111229

REACTIONS (11)
  - CARDIAC DISORDER [None]
  - PAIN [None]
  - MUSCULOSKELETAL CHEST PAIN [None]
  - HEADACHE [None]
  - FUNGAL OESOPHAGITIS [None]
  - DIZZINESS [None]
  - VOMITING [None]
  - NAUSEA [None]
  - GASTROINTESTINAL FUNGAL INFECTION [None]
  - ABDOMINAL DISCOMFORT [None]
  - INJECTION SITE HAEMORRHAGE [None]
